FAERS Safety Report 9183547 (Version 1)
Quarter: 2013Q1

REPORT INFORMATION
  Report Type: Spontaneous
  Country: US (occurrence: US)
  Receive Date: 20130322
  Receipt Date: 20130322
  Transmission Date: 20140127
  Serious: Yes (Other)
  Sender: FDA-Public Use
  Company Number: US-BRISTOL-MYERS SQUIBB COMPANY-16515462

PATIENT
  Age: 59 Year
  Sex: Female

DRUGS (2)
  1. ERBITUX [Suspect]
     Indication: COLORECTAL CANCER
     Dosage: RECEIVED 10 CYCLES,ONE DAY AGO.DOSAGE:552MG
     Route: 042
     Dates: start: 20120202
  2. BENADRYL [Concomitant]
     Indication: PREMEDICATION

REACTIONS (11)
  - Headache [Unknown]
  - Erythema [Unknown]
  - Facial pain [Unknown]
  - Dry skin [Unknown]
  - Acne [Unknown]
  - Hair texture abnormal [Unknown]
  - Pyrexia [Unknown]
  - Flushing [Unknown]
  - Nausea [Unknown]
  - Vomiting [Unknown]
  - Chills [Unknown]
